FAERS Safety Report 12859139 (Version 1)
Quarter: 2016Q4

REPORT INFORMATION
  Report Type: Spontaneous
  Country: US (occurrence: US)
  Receive Date: 20161018
  Receipt Date: 20161018
  Transmission Date: 20170207
  Serious: No
  Sender: FDA-Public Use
  Company Number: US-NOVOPROD-505423

PATIENT
  Age: 64 Year
  Sex: Female

DRUGS (1)
  1. TRESIBA [Suspect]
     Active Substance: INSULIN DEGLUDEC
     Indication: TYPE 1 DIABETES MELLITUS
     Dosage: 17 U, QD
     Route: 058
     Dates: start: 2016, end: 2016

REACTIONS (6)
  - Swelling face [Recovered/Resolved]
  - Feeling hot [Recovered/Resolved]
  - Fluid retention [Recovered/Resolved]
  - Blood glucose decreased [Recovered/Resolved]
  - Weight increased [Recovered/Resolved]
  - Flushing [Recovered/Resolved]

NARRATIVE: CASE EVENT DATE: 2016
